FAERS Safety Report 23921080 (Version 1)
Quarter: 2024Q2

REPORT INFORMATION
  Report Type: Spontaneous
  Country: CN (occurrence: CN)
  Receive Date: 20240530
  Receipt Date: 20240530
  Transmission Date: 20240716
  Serious: Yes (Other)
  Sender: FDA-Public Use
  Company Number: CN-SANDOZ-SDZ2024CN052526

PATIENT
  Age: 31 Year
  Sex: Male
  Weight: 54.1 kg

DRUGS (1)
  1. VORICONAZOLE [Suspect]
     Active Substance: VORICONAZOLE
     Indication: Immunodeficiency
     Dosage: 200 MG, BID
     Route: 048
     Dates: start: 20240513, end: 20240522

REACTIONS (2)
  - Neurotoxicity [Unknown]
  - Hallucination [Unknown]

NARRATIVE: CASE EVENT DATE: 20240522
